FAERS Safety Report 14798661 (Version 2)
Quarter: 2018Q2

REPORT INFORMATION
  Report Type: Report from Study
  Country: SE (occurrence: SE)
  Receive Date: 20180424
  Receipt Date: 20180523
  Transmission Date: 20180711
  Serious: Yes (Death, Hospitalization)
  Sender: FDA-Public Use
  Company Number: SE-INCYTE CORPORATION-2016IN001553

PATIENT

DRUGS (3)
  1. JAKAVI [Suspect]
     Active Substance: RUXOLITINIB
     Dosage: 10 MG, QD
     Route: 048
  2. JAKAVI [Suspect]
     Active Substance: RUXOLITINIB
     Indication: MYELOFIBROSIS
     Dosage: 40 MG, QD
     Route: 048
     Dates: start: 20140901
  3. JAKAVI [Suspect]
     Active Substance: RUXOLITINIB
     Dosage: 30 MG, UNK
     Route: 048
     Dates: start: 20151110

REACTIONS (6)
  - Balance disorder [Fatal]
  - Glioblastoma [Fatal]
  - Fall [Fatal]
  - Weight increased [Recovered/Resolved]
  - Muscular weakness [Unknown]
  - Brain neoplasm [Fatal]

NARRATIVE: CASE EVENT DATE: 20150430
